FAERS Safety Report 15306482 (Version 3)
Quarter: 2018Q3

REPORT INFORMATION
  Report Type: Spontaneous
  Country: US (occurrence: US)
  Receive Date: 20180822
  Receipt Date: 20180904
  Transmission Date: 20181010
  Serious: Yes (Other)
  Sender: FDA-Public Use
  Company Number: US-SA-2018SA229576

PATIENT
  Age: 65 Year
  Sex: Male

DRUGS (1)
  1. LANTUS SOLOSTAR [Suspect]
     Active Substance: INSULIN GLARGINE
     Indication: TYPE 2 DIABETES MELLITUS
     Dosage: 28 U, QD ONCE IN THE EVENING
     Route: 065
     Dates: start: 200902

REACTIONS (4)
  - Neoplasm malignant [Unknown]
  - Underdose [Unknown]
  - Device operational issue [Unknown]
  - Vision blurred [Unknown]
